FAERS Safety Report 8990082 (Version 1)
Quarter: 2012Q4

REPORT INFORMATION
  Report Type: 
  Country: NO (occurrence: NO)
  Receive Date: 20121228
  Receipt Date: 20121228
  Transmission Date: 20130627
  Serious: Yes (Other)
  Sender: FDA-Public Use
  Company Number: PHHY2008NO044765

PATIENT
  Age: 64 Year
  Sex: Male

DRUGS (1)
  1. METOPROLOL SANDOZ [Suspect]

REACTIONS (2)
  - Cardiac flutter [Unknown]
  - Rash [Unknown]
